FAERS Safety Report 17745736 (Version 1)
Quarter: 2020Q2

REPORT INFORMATION
  Report Type: Spontaneous
  Country: DE (occurrence: RU)
  Receive Date: 20200505
  Receipt Date: 20200505
  Transmission Date: 20200714
  Serious: Yes (Other)
  Sender: FDA-Public Use
  Company Number: RU-ELI_LILLY_AND_COMPANY-RU202005000622

PATIENT
  Age: 54 Year
  Sex: Male
  Weight: 73 kg

DRUGS (6)
  1. ERBITUX [Suspect]
     Active Substance: CETUXIMAB
     Indication: COLON CANCER METASTATIC
     Dosage: 400 MG/M2, UNK
     Route: 065
     Dates: start: 2016
  2. ERBITUX [Suspect]
     Active Substance: CETUXIMAB
     Dosage: 250 MG/M2, UNK
     Route: 065
     Dates: start: 2016
  3. 5-FLUOROURACIL [FLUOROURACIL] [Concomitant]
     Active Substance: FLUOROURACIL
     Indication: PRODUCT USED FOR UNKNOWN INDICATION
     Dosage: 2400 MG/M2, UNK
     Route: 042
     Dates: start: 20161101, end: 20170516
  4. 5-FLUOROURACIL [FLUOROURACIL] [Concomitant]
     Active Substance: FLUOROURACIL
     Indication: COLON CANCER METASTATIC
     Dosage: 400 MG/M2, UNK
     Route: 065
     Dates: start: 20161101, end: 20170516
  5. IRINOTECAN [Concomitant]
     Active Substance: IRINOTECAN
     Indication: COLON CANCER METASTATIC
     Dosage: 180 MG/M2, UNK
     Route: 042
     Dates: start: 20161101, end: 20170516
  6. LEUCOVORIN [FOLINIC ACID] [Concomitant]
     Active Substance: LEUCOVORIN
     Indication: COLON CANCER METASTATIC
     Dosage: 400 MG/M2, UNK
     Route: 042
     Dates: start: 20161101, end: 20170516

REACTIONS (2)
  - Lymphadenopathy [Unknown]
  - Haemangioma of bone [Unknown]

NARRATIVE: CASE EVENT DATE: 20170412
